FAERS Safety Report 16244402 (Version 1)
Quarter: 2019Q2

REPORT INFORMATION
  Report Type: Spontaneous
  Country: US (occurrence: US)
  Receive Date: 20190426
  Receipt Date: 20190426
  Transmission Date: 20190711
  Serious: Yes (Other)
  Sender: FDA-Public Use
  Company Number: US-PFIZER INC-2019173722

PATIENT
  Age: 11 Year
  Sex: Male
  Weight: 51.25 kg

DRUGS (5)
  1. GENOTROPIN [Suspect]
     Active Substance: SOMATROPIN
     Indication: DWARFISM
     Dosage: 1.4 MG, DAILY
  2. GENOTROPIN [Suspect]
     Active Substance: SOMATROPIN
     Indication: DWARFISM
     Dosage: 1.4 MG, DAILY
  3. FLUOXETINE [Concomitant]
     Active Substance: FLUOXETINE HYDROCHLORIDE
     Indication: AFFECTIVE DISORDER
     Dosage: 10 MG, 1X/DAY
     Route: 048
     Dates: start: 201711
  4. RISPERDAL [Concomitant]
     Active Substance: RISPERIDONE
     Indication: AFFECTIVE DISORDER
     Dosage: UNK UNK, 1X/DAY (1 MG TABLET, 1/2 TABLET ONCE PER DAY BY MOUTH)
     Route: 048
  5. GUANFACINE. [Concomitant]
     Active Substance: GUANFACINE
     Indication: ATTENTION DEFICIT/HYPERACTIVITY DISORDER
     Dosage: 1 MG, 1X/DAY
     Route: 048
     Dates: start: 201902

REACTIONS (7)
  - Influenza [Unknown]
  - Blood prolactin increased [Unknown]
  - Incorrect dose administered by device [Unknown]
  - Blood pressure decreased [Unknown]
  - Dehydration [Unknown]
  - Drug administered in wrong device [Unknown]
  - Product dispensing issue [Unknown]

NARRATIVE: CASE EVENT DATE: 201902
